FAERS Safety Report 9661037 (Version 3)
Quarter: 2014Q1

REPORT INFORMATION
  Report Type: Spontaneous
  Country: BR (occurrence: BR)
  Receive Date: 20131031
  Receipt Date: 20140221
  Transmission Date: 20141002
  Serious: Yes (Other)
  Sender: FDA-Public Use
  Company Number: BR-GLAXOSMITHKLINE-A1047794A

PATIENT
  Age: 63 Year
  Sex: Male
  Weight: 58 kg

DRUGS (6)
  1. SERETIDE [Suspect]
     Indication: CHRONIC OBSTRUCTIVE PULMONARY DISEASE
     Dosage: 1PUFF TWICE PER DAY
     Route: 065
     Dates: start: 2011
  2. ACETYLCYSTEINE [Concomitant]
  3. SPIRIVA [Concomitant]
  4. DUOVENT [Concomitant]
  5. OMEPRAZOLE [Concomitant]
  6. ASCORBIC ACID [Concomitant]

REACTIONS (4)
  - Urinary tract infection [Not Recovered/Not Resolved]
  - Decreased appetite [Not Recovered/Not Resolved]
  - Fatigue [Not Recovered/Not Resolved]
  - Product quality issue [Unknown]
